FAERS Safety Report 14681675 (Version 1)
Quarter: 2018Q1

REPORT INFORMATION
  Report Type: Spontaneous
  Country: US (occurrence: US)
  Receive Date: 20180326
  Receipt Date: 20180326
  Transmission Date: 20180509
  Serious: Yes (Other)
  Sender: FDA-Public Use
  Company Number: US-PFIZER INC-2018118268

PATIENT
  Age: 80 Year
  Sex: Female

DRUGS (2)
  1. PREMARIN [Suspect]
     Active Substance: ESTROGENS, CONJUGATED
     Dosage: UNK
  2. DETROL [Suspect]
     Active Substance: TOLTERODINE TARTRATE
     Dosage: UNK

REACTIONS (6)
  - Vaginal haemorrhage [Unknown]
  - Vulvovaginal dryness [Unknown]
  - Insomnia [Unknown]
  - Urinary incontinence [Unknown]
  - Brain injury [Recovering/Resolving]
  - Head discomfort [Unknown]
